FAERS Safety Report 7867631-8 (Version None)
Quarter: 2011Q4

REPORT INFORMATION
  Report Type: 
  Country: None (occurrence: None)
  Receive Date: 20111028
  Receipt Date: 20111024
  Transmission Date: 20120403
  Serious: Yes (Death)
  Sender: FDA-Public Use
  Company Number: PHHY2011MX93303

PATIENT
  Age: 65 Year
  Sex: Male

DRUGS (2)
  1. INSULIN [Concomitant]
  2. DIOVAN HCT [Suspect]
     Indication: HYPERTENSION
     Dosage: 1 DF, (160/25 MG DAILY)
     Dates: start: 20100601

REACTIONS (1)
  - MYOCARDIAL INFARCTION [None]
